FAERS Safety Report 14361934 (Version 3)
Quarter: 2018Q1

REPORT INFORMATION
  Report Type: Report from Study
  Country: AU (occurrence: AU)
  Receive Date: 20180108
  Receipt Date: 20180322
  Transmission Date: 20180509
  Serious: Yes (Other)
  Sender: FDA-Public Use
  Company Number: AU-BRISTOL-MYERS SQUIBB COMPANY-BMS-2018-000059

PATIENT
  Age: 85 Year
  Sex: Male

DRUGS (4)
  1. KARVEZIDE [Concomitant]
     Active Substance: HYDROCHLOROTHIAZIDE\IRBESARTAN
     Indication: PRODUCT USED FOR UNKNOWN INDICATION
     Route: 065
  2. INNER HEALTH PLUS [Concomitant]
     Indication: PRODUCT USED FOR UNKNOWN INDICATION
     Route: 065
  3. NIVOLUMAB [Suspect]
     Active Substance: NIVOLUMAB
     Indication: MALIGNANT MELANOMA
     Dosage: 279 MG, Q2WK
     Route: 042
  4. LIPITOR [Concomitant]
     Active Substance: ATORVASTATIN CALCIUM
     Indication: PRODUCT USED FOR UNKNOWN INDICATION
     Route: 065

REACTIONS (10)
  - Cellulitis [Unknown]
  - Rib fracture [Unknown]
  - Fall [Recovering/Resolving]
  - Fatigue [Unknown]
  - Musculoskeletal stiffness [Unknown]
  - Arthralgia [Unknown]
  - Balance disorder [Unknown]
  - Tremor [Unknown]
  - Myalgia [Unknown]
  - Gastrointestinal disorder [Unknown]

NARRATIVE: CASE EVENT DATE: 20171229
